FAERS Safety Report 6029874-8 (Version None)
Quarter: 2008Q4

REPORT INFORMATION
  Report Type: 
  Country: None (occurrence: None)
  Receive Date: 20081222
  Receipt Date: 20081126
  Transmission Date: 20090506
  Serious: No
  Sender: FDA-Public Use
  Company Number: US-WYE-H06980008

PATIENT
  Sex: 0

DRUGS (2)
  1. PRISTIQ [Suspect]
     Dosage: 50 MG 1X PER 2 DAY, ORAL
     Route: 048
     Dates: end: 20080101
  2. PRISTIQ [Suspect]
     Dosage: 50 MG 1X PER 2 DAY, ORAL
     Route: 048
     Dates: start: 20080101

REACTIONS (4)
  - COLD SWEAT [None]
  - DRUG WITHDRAWAL SYNDROME [None]
  - INSOMNIA [None]
  - NAUSEA [None]
